FAERS Safety Report 8823465 (Version 4)
Quarter: 2012Q4

REPORT INFORMATION
  Report Type: 
  Country: US (occurrence: US)
  Receive Date: 20121003
  Receipt Date: 20121023
  Transmission Date: 20130627
  Serious: Yes (Other)
  Sender: FDA-Public Use
  Company Number: US-ASTRAZENECA-2012SE75022

PATIENT
  Age: 56 Year
  Sex: Female

DRUGS (8)
  1. PULMICORT TURBUHALER [Suspect]
     Indication: ASTHMA
     Dosage: 200 MCG TWO TIMES A DAY
     Route: 055
  2. SYMBICORT PMDI [Suspect]
     Indication: ASTHMA
     Dosage: 160/4.5 2 PUFFS AM AND PM
     Route: 055
  3. COMBIVENT [Concomitant]
  4. PREDNISONE [Concomitant]
  5. SEREVENT [Concomitant]
  6. FORADIL [Concomitant]
  7. XOLAIR [Concomitant]
  8. XOPENEX [Concomitant]
     Dosage: via Nebulizer

REACTIONS (7)
  - Asthma [Unknown]
  - Activities of daily living impaired [Unknown]
  - Sleep disorder due to a general medical condition [Unknown]
  - Somnolence [Unknown]
  - Exercise tolerance decreased [Unknown]
  - Drug ineffective [Unknown]
  - Off label use [Unknown]
